FAERS Safety Report 21382524 (Version 2)
Quarter: 2022Q4

REPORT INFORMATION
  Report Type: Spontaneous
  Country: US (occurrence: None)
  Receive Date: 20220927
  Receipt Date: 20221124
  Transmission Date: 20230113
  Serious: Yes (Hospitalization)
  Sender: FDA-Public Use
  Company Number: US-ROCHE-3184225

PATIENT
  Sex: Male

DRUGS (2)
  1. HEMLIBRA [Suspect]
     Active Substance: EMICIZUMAB-KXWH
     Indication: Factor VIII deficiency
     Dosage: STRENGTH 150 MG/ML?MOST RECENT DOSE WAS RECEIVED IN JAN 2022
     Route: 058
     Dates: start: 20200303, end: 202201
  2. HEMLIBRA [Suspect]
     Active Substance: EMICIZUMAB-KXWH
     Dosage: STRENGTH 60 MG/0.4 ML
     Route: 058
     Dates: start: 20200303, end: 202201

REACTIONS (1)
  - Haemorrhage [Not Recovered/Not Resolved]
